FAERS Safety Report 9411592 (Version 3)
Quarter: 2014Q1

REPORT INFORMATION
  Report Type: Report from Study
  Country: IT (occurrence: IT)
  Receive Date: 20130722
  Receipt Date: 20140130
  Transmission Date: 20141002
  Serious: Yes (Other)
  Sender: FDA-Public Use
  Company Number: IT-CELGENEUS-083-CYCLO-13071003

PATIENT
  Age: 76 Year
  Sex: Female
  Weight: 50 kg

DRUGS (10)
  1. THALIDOMIDE [Suspect]
     Indication: PLASMA CELL MYELOMA
     Route: 048
     Dates: start: 200910, end: 201002
  2. CYCLOPHOSPHAMIDE [Suspect]
     Indication: PLASMA CELL MYELOMA
     Dosage: 50 MILLIGRAM
     Route: 048
     Dates: start: 20100415, end: 20100517
  3. CYCLOPHOSPHAMIDE [Suspect]
     Dosage: 25 MILLIGRAM
     Route: 048
     Dates: start: 20100728, end: 20121212
  4. CYCLOPHOSPHAMIDE [Suspect]
     Dosage: 50 MILLIGRAM
     Route: 048
     Dates: start: 20121213, end: 20130207
  5. CYCLOPHOSPHAMIDE [Suspect]
     Dosage: 25 MILLIGRAM
     Route: 048
     Dates: start: 20130208, end: 20130527
  6. CORDARONE [Concomitant]
     Indication: ATRIAL FIBRILLATION
     Dosage: 200 MILLIGRAM
     Route: 048
     Dates: start: 20110512
  7. WARFARIN [Concomitant]
     Indication: ATRIAL FIBRILLATION
     Route: 048
     Dates: start: 20110512
  8. WARFARIN [Concomitant]
     Indication: CEREBRAL ISCHAEMIA
  9. WARFARIN [Concomitant]
     Indication: CAROTID ARTERY STENOSIS
  10. WARFARIN [Concomitant]
     Indication: ACUTE MYOCARDIAL INFARCTION

REACTIONS (1)
  - Breast cancer stage II [Not Recovered/Not Resolved]
